FAERS Safety Report 4330492-8 (Version None)
Quarter: 2004Q1

REPORT INFORMATION
  Report Type: 
  Country: None (occurrence: None)
  Receive Date: 20040329
  Receipt Date: 20040316
  Transmission Date: 20041129
  Serious: Yes (Death)
  Sender: FDA-Public Use
  Company Number: JP-JNJFOC-20040303819

PATIENT
  Age: 61 Year
  Sex: Male

DRUGS (4)
  1. FENTANYL [Suspect]
     Indication: CANCER PAIN
     Dosage: SEE IMAGE
     Route: 062
     Dates: start: 20040206, end: 20040220
  2. FENTANYL [Suspect]
     Indication: CANCER PAIN
     Dosage: SEE IMAGE
     Route: 062
     Dates: start: 20040220
  3. MAGNESIUM HYDROXIDE (MAGNESIUM HYDROXIDE) [Concomitant]
  4. MICONAZOLE [Concomitant]

REACTIONS (3)
  - HYPERCALCAEMIA [None]
  - MALIGNANT NEOPLASM PROGRESSION [None]
  - OESOPHAGEAL CARCINOMA [None]
